FAERS Safety Report 20471227 (Version 1)
Quarter: 2022Q1

REPORT INFORMATION
  Report Type: Spontaneous
  Country: US (occurrence: None)
  Receive Date: 20220211
  Receipt Date: 20220211
  Transmission Date: 20220423
  Serious: No
  Sender: FDA-Public Use
  Company Number: None

PATIENT
  Age: 70 Year
  Sex: Female
  Weight: 73.94 kg

DRUGS (1)
  1. SUNITINIB [Suspect]
     Active Substance: SUNITINIB
     Indication: Gastrointestinal carcinoma
     Dosage: OTHER FREQUENCY : Q 28/42DAYS;?
     Route: 048

REACTIONS (4)
  - Hypothyroidism [None]
  - Diarrhoea [None]
  - Hypertension [None]
  - Thrombocytopenia [None]
